FAERS Safety Report 8390606-X (Version None)
Quarter: 2012Q2

REPORT INFORMATION
  Report Type: 
  Country: None (occurrence: None)
  Receive Date: 20120529
  Receipt Date: 20120517
  Transmission Date: 20120825
  Serious: Yes (Hospitalization)
  Sender: FDA-Public Use
  Company Number: US-BAYER-201035519NA

PATIENT
  Age: 41 Year
  Sex: Female
  Weight: 102.4 kg

DRUGS (21)
  1. YASMIN [Suspect]
     Indication: DYSMENORRHOEA
  2. PERCOCET [OXYCODONE HYDROCHLORIDE,OXYCODONE TEREPHTHALATE,PARACETA [Concomitant]
     Indication: PAIN
     Dosage: 650 MG, UNK
  3. DIETARY SUPPLEMENTS [Concomitant]
  4. FLEXERIL [Concomitant]
     Dosage: 10 MG, UNK
     Route: 048
  5. LIPITOR [Concomitant]
     Dosage: 10 MG, QD
     Route: 048
     Dates: start: 20050101
  6. HERBAL PREPARATION [Concomitant]
  7. COLACE [Concomitant]
     Dosage: 100 MG, BID
     Route: 048
  8. TYLENOL W/ CODEINE [Concomitant]
     Dosage: UNK UNK, PRN
  9. TRAMADOL HCL [Concomitant]
     Dosage: 50 MG, PRN
     Route: 048
  10. ASPIRIN [Concomitant]
  11. ALBUTEROL [Concomitant]
     Dosage: 2.5 MG, PRN
     Route: 045
  12. ZOCOR [Concomitant]
  13. PEPCID AC [Concomitant]
     Dosage: 20 MG, BID
  14. METFORMIN HCL [Concomitant]
     Indication: DIABETES MELLITUS
     Dosage: 500 MG, TID
     Dates: start: 20090501
  15. FENTANYL-100 [Concomitant]
  16. YASMIN [Suspect]
     Indication: MENSTRUATION IRREGULAR
     Dosage: UNK UNK, UNK
     Route: 048
     Dates: start: 20050208, end: 20090715
  17. NAPROXEN [Concomitant]
     Route: 048
  18. YASMIN [Suspect]
     Indication: PELVIC PAIN
  19. POLYETHYLENE GLYCOL [Concomitant]
     Route: 048
  20. NITROGLYCERIN [Concomitant]
     Dosage: 0.4 MG, PRN
  21. SIMVASTATIN [Concomitant]
     Indication: BLOOD CHOLESTEROL INCREASED
     Dosage: 20 MG, QD
     Route: 048
     Dates: start: 20071003

REACTIONS (1)
  - PULMONARY EMBOLISM [None]
